FAERS Safety Report 12951024 (Version 1)
Quarter: 2016Q4

REPORT INFORMATION
  Report Type: Spontaneous
  Country: RO (occurrence: RO)
  Receive Date: 20161117
  Receipt Date: 20161117
  Transmission Date: 20170207
  Serious: Yes (Other)
  Sender: FDA-Public Use
  Company Number: RO-JNJFOC-20161112315

PATIENT
  Age: 34 Year
  Sex: Female

DRUGS (3)
  1. XEPLION [Suspect]
     Active Substance: PALIPERIDONE PALMITATE
     Indication: BIPOLAR DISORDER
     Route: 030
     Dates: start: 201609
  2. XEPLION [Suspect]
     Active Substance: PALIPERIDONE PALMITATE
     Indication: BIPOLAR DISORDER
     Route: 030
     Dates: start: 201608
  3. XEPLION [Suspect]
     Active Substance: PALIPERIDONE PALMITATE
     Indication: BIPOLAR DISORDER
     Route: 030
     Dates: start: 201610

REACTIONS (7)
  - Suicidal ideation [Unknown]
  - Somnolence [Recovered/Resolved with Sequelae]
  - Mania [Not Recovered/Not Resolved]
  - Agitation [Not Recovered/Not Resolved]
  - Intellectualisation [Not Recovered/Not Resolved]
  - Insomnia [Not Recovered/Not Resolved]
  - Libido increased [Not Recovered/Not Resolved]

NARRATIVE: CASE EVENT DATE: 2016
